FAERS Safety Report 10268774 (Version 1)
Quarter: 2014Q2

REPORT INFORMATION
  Report Type: Spontaneous
  Country: CA (occurrence: CA)
  Receive Date: 20140630
  Receipt Date: 20140630
  Transmission Date: 20141212
  Serious: Yes (Hospitalization)
  Sender: FDA-Public Use
  Company Number: CA-GLAXOSMITHKLINE-A1075893A

PATIENT
  Age: 76 Year
  Sex: Male
  Weight: 87.1 kg

DRUGS (10)
  1. FLOVENT [Suspect]
     Indication: PRODUCT USED FOR UNKNOWN INDICATION
     Dosage: 2PUFF TWICE PER DAY
     Route: 055
     Dates: end: 201403
  2. CRESTOR [Concomitant]
  3. NITROSPRAY [Concomitant]
  4. PANTOLOC [Concomitant]
  5. PLAVIX [Concomitant]
  6. SERC [Concomitant]
  7. SPIRIVA [Concomitant]
  8. VENTOLIN [Concomitant]
  9. B12 [Concomitant]
  10. CIALIS [Concomitant]

REACTIONS (3)
  - Pneumonia [Recovered/Resolved]
  - Bronchiectasis [Unknown]
  - Bronchitis [Unknown]
